FAERS Safety Report 21673450 (Version 1)
Quarter: 2022Q4

REPORT INFORMATION
  Report Type: Spontaneous
  Country: SG (occurrence: SG)
  Receive Date: 20221202
  Receipt Date: 20221202
  Transmission Date: 20230112
  Serious: Yes (Death)
  Sender: FDA-Public Use
  Company Number: SG-ASTELLAS-2022US042346

PATIENT
  Sex: Male

DRUGS (1)
  1. XTANDI [Suspect]
     Active Substance: ENZALUTAMIDE
     Indication: Hormone-refractory prostate cancer
     Dosage: UNK, UNKNOWN FREQ.
     Route: 065

REACTIONS (3)
  - Fall [Fatal]
  - Prostatic specific antigen abnormal [Unknown]
  - Fatigue [Unknown]
